FAERS Safety Report 12725727 (Version 5)
Quarter: 2019Q1

REPORT INFORMATION
  Report Type: Report from Study
  Country: US (occurrence: US)
  Receive Date: 20160908
  Receipt Date: 20190326
  Transmission Date: 20190417
  Serious: Yes (Other)
  Sender: FDA-Public Use
  Company Number: US-CELGENEUS-USA-2016090765

PATIENT
  Age: 77 Year
  Sex: Male
  Weight: 97.7 kg

DRUGS (5)
  1. AZACITIDINE (SANDOZ) [Suspect]
     Active Substance: AZACITIDINE
     Indication: ACUTE MYELOID LEUKAEMIA
     Dosage: 74 MILLIGRAM
     Route: 058
     Dates: start: 20160829, end: 20170210
  2. AZACITIDINE (NOVAPLUS) [Suspect]
     Active Substance: AZACITIDINE
     Indication: ACUTE MYELOID LEUKAEMIA
     Dosage: 74 MILLIGRAM
     Route: 058
     Dates: start: 20160829, end: 20170210
  3. AZACITIDINE. [Suspect]
     Active Substance: AZACITIDINE
     Dosage: 114 MILLIGRAM
     Route: 058
     Dates: start: 20151109, end: 20160626
  4. AZACITIDINE. [Suspect]
     Active Substance: AZACITIDINE
     Indication: MYELODYSPLASTIC SYNDROME
     Dosage: 150 MILLIGRAM
     Route: 058
     Dates: start: 20151012, end: 20151020
  5. PACKED RED BLOOD CELLS [Concomitant]
     Active Substance: HUMAN RED BLOOD CELL
     Indication: ANAEMIA
     Route: 065

REACTIONS (5)
  - Cytopenia [Unknown]
  - Cytopenia [Recovered/Resolved]
  - Neutrophil count decreased [Not Recovered/Not Resolved]
  - Nausea [Recovered/Resolved]
  - Vomiting [Recovered/Resolved]

NARRATIVE: CASE EVENT DATE: 20151015
